FAERS Safety Report 4871740-5 (Version None)
Quarter: 2006Q1

REPORT INFORMATION
  Report Type: 
  Country: None (occurrence: None)
  Receive Date: 20060104
  Receipt Date: 20050323
  Transmission Date: 20060701
  Serious: Yes (Hospitalization)
  Sender: FDA-Public Use
  Company Number: US-BRISTOL-MYERS SQUIBB COMPANY-12913935

PATIENT
  Age: 57 Year
  Sex: Male

DRUGS (10)
  1. TRAZODONE HCL [Suspect]
     Dates: start: 20040501
  2. PRINIVIL [Suspect]
     Route: 048
     Dates: start: 20040501
  3. DIPHENHYDRAMINE HCL [Suspect]
     Dates: start: 20040501
  4. DILTIAZEM HCL [Suspect]
     Dates: end: 20040621
  5. GABAPENTIN [Suspect]
  6. SERTRALINE HCL [Suspect]
     Dates: start: 20040501
  7. SYNTHROID [Concomitant]
  8. INSULIN ASPART [Concomitant]
  9. OMEPRAZOLE [Concomitant]
  10. SIMVASTATIN [Concomitant]

REACTIONS (1)
  - DIZZINESS [None]
